FAERS Safety Report 8350671-2 (Version None)
Quarter: 2012Q2

REPORT INFORMATION
  Report Type: 
  Country: None (occurrence: None)
  Receive Date: 20120510
  Receipt Date: 20120504
  Transmission Date: 20120825
  Serious: Yes (Other)
  Sender: FDA-Public Use
  Company Number: US-JNJFOC-20111011100

PATIENT
  Sex: Female

DRUGS (1)
  1. LEVAQUIN [Suspect]
     Indication: CYSTITIS
     Route: 048

REACTIONS (5)
  - ROTATOR CUFF SYNDROME [None]
  - ANXIETY [None]
  - TRIGGER FINGER [None]
  - DEPRESSION [None]
  - TENDONITIS [None]
